FAERS Safety Report 4986940-3 (Version None)
Quarter: 2006Q2

REPORT INFORMATION
  Report Type: 
  Country: None (occurrence: None)
  Receive Date: 20060501
  Receipt Date: 20060424
  Transmission Date: 20061013
  Serious: Yes (Disabling, Other)
  Sender: FDA-Public Use
  Company Number: PHBS2006JP06176

PATIENT
  Age: 24 Year
  Sex: Female

DRUGS (1)
  1. CAFERGOT [Suspect]
     Route: 048

REACTIONS (1)
  - BLINDNESS UNILATERAL [None]
